FAERS Safety Report 21513933 (Version 2)
Quarter: 2023Q1

REPORT INFORMATION
  Report Type: Spontaneous
  Country: US (occurrence: US)
  Receive Date: 20221027
  Receipt Date: 20230303
  Transmission Date: 20230417
  Serious: Yes (Hospitalization, Other)
  Sender: FDA-Public Use
  Company Number: US-Accord-282595

PATIENT
  Age: 69 Year
  Sex: Female
  Weight: 113.60 kg

DRUGS (14)
  1. GEMCITABINE [Suspect]
     Active Substance: GEMCITABINE
     Indication: Ductal adenocarcinoma of pancreas
     Dosage: 2Q3W
     Route: 042
     Dates: start: 20220926
  2. PACLITAXEL [Suspect]
     Active Substance: PACLITAXEL
     Indication: Ductal adenocarcinoma of pancreas
     Dosage: 2Q3W
     Route: 042
     Dates: start: 20220926
  3. PEMBROLIZUMAB [Suspect]
     Active Substance: PEMBROLIZUMAB
     Indication: Ductal adenocarcinoma of pancreas
     Dosage: 1Q3W
     Route: 042
     Dates: start: 20220926
  4. DEXAMETHASONE [Concomitant]
     Active Substance: DEXAMETHASONE
     Dates: start: 20220926
  5. ATORVASTATIN [Concomitant]
     Active Substance: ATORVASTATIN
     Dates: start: 19950101
  6. DIGOXIN [Concomitant]
     Active Substance: DIGOXIN
     Dates: start: 20010101
  7. DILTIAZEM [Concomitant]
     Active Substance: DILTIAZEM
     Dates: start: 20010101
  8. ELIQUIS [Concomitant]
     Active Substance: APIXABAN
     Dates: start: 20180101
  9. GLIPIZIDE [Concomitant]
     Active Substance: GLIPIZIDE
     Dates: start: 20190101
  10. METFORMIN [Concomitant]
     Active Substance: METFORMIN HYDROCHLORIDE
     Dates: start: 20190101
  11. METOPROLOL TARTRATE [Concomitant]
     Active Substance: METOPROLOL TARTRATE
     Dates: start: 20000701
  12. TORSEMIDE [Concomitant]
     Active Substance: TORSEMIDE
     Dates: start: 20180101
  13. ACETAMINOPHEN\HYDROCODONE [Concomitant]
     Active Substance: ACETAMINOPHEN\HYDROCODONE
     Dates: start: 20220907
  14. SPIRONOLACTONE [Concomitant]
     Active Substance: SPIRONOLACTONE
     Dates: start: 19860101

REACTIONS (1)
  - Ascites [Recovered/Resolved]

NARRATIVE: CASE EVENT DATE: 20220929
